FAERS Safety Report 12918739 (Version 4)
Quarter: 2017Q1

REPORT INFORMATION
  Report Type: Report from Study
  Country: PA (occurrence: PA)
  Receive Date: 20161107
  Receipt Date: 20170201
  Transmission Date: 20170428
  Serious: Yes (Other)
  Sender: FDA-Public Use
  Company Number: PHHY2016PA144824

PATIENT
  Age: 62 Year
  Sex: Female

DRUGS (4)
  1. ALTRULINE [Concomitant]
     Active Substance: SERTRALINE HYDROCHLORIDE
     Indication: DEPRESSION
     Dosage: 1 DF, QD (DAILY IN THE MORNING)
     Route: 048
  2. CORTISONE [Suspect]
     Active Substance: CORTISONE\HYDROCORTISONE
     Indication: BURNING SENSATION
  3. CORTISONE [Suspect]
     Active Substance: CORTISONE\HYDROCORTISONE
     Indication: MUSCULAR WEAKNESS
     Dosage: UNK (FOR 5 DAYS)
     Route: 042
  4. GILENYA [Suspect]
     Active Substance: FINGOLIMOD HYDROCHLORIDE
     Indication: MULTIPLE SCLEROSIS
     Dosage: 0.5 MG, QD
     Route: 048

REACTIONS (18)
  - Burning sensation [Unknown]
  - Back pain [Unknown]
  - Dizziness [Unknown]
  - Fatigue [Unknown]
  - Feeling abnormal [Unknown]
  - Sinusitis [Unknown]
  - Inner ear disorder [Unknown]
  - Drug ineffective [Unknown]
  - Muscle spasticity [Unknown]
  - Hypertension [Unknown]
  - Headache [Unknown]
  - Vertigo [Unknown]
  - Paraesthesia [Unknown]
  - Visual impairment [Unknown]
  - Multiple sclerosis relapse [Unknown]
  - Muscular weakness [Not Recovered/Not Resolved]
  - Multiple sclerosis [Unknown]
  - Gastritis [Unknown]
